FAERS Safety Report 7386410-1 (Version None)
Quarter: 2011Q1

REPORT INFORMATION
  Report Type: 
  Country: None (occurrence: None)
  Receive Date: 20110331
  Receipt Date: 20110328
  Transmission Date: 20110831
  Serious: Yes (Death, Hospitalization)
  Sender: FDA-Public Use
  Company Number: PHHY2010CA11556

PATIENT
  Sex: Female

DRUGS (3)
  1. CHEMOTHERAPEUTICS NOS [Concomitant]
  2. ZOMETA [Suspect]
     Indication: METASTASES TO BONE
     Dosage: 4 MG EVERY 6 WEEKS
     Dates: start: 20100203, end: 20100203
  3. ZOMETA [Suspect]
     Dosage: 4 MG EVERY 6 WEEKS
     Dates: start: 20110321

REACTIONS (11)
  - DYSPHAGIA [None]
  - DEATH [None]
  - BLOOD CALCIUM DECREASED [None]
  - PLATELET COUNT INCREASED [None]
  - APHONIA [None]
  - ASTHENIA [None]
  - HAEMOGLOBIN DECREASED [None]
  - HEART RATE INCREASED [None]
  - BLOOD SODIUM DECREASED [None]
  - BLOOD CHLORIDE DECREASED [None]
  - HYPOTENSION [None]
